FAERS Safety Report 6437292-3 (Version None)
Quarter: 2009Q4

REPORT INFORMATION
  Report Type: 
  Country: None (occurrence: None)
  Receive Date: 20091112
  Receipt Date: 20091109
  Transmission Date: 20100525
  Serious: Yes (Other)
  Sender: FDA-Public Use
  Company Number: US-ROCHE-662105

PATIENT
  Sex: Female

DRUGS (6)
  1. TAMIFLU [Suspect]
     Indication: INFLUENZA
     Dosage: DRUG: TAMIFLU (OSELTAMIVIR PHOSPHATE)
     Route: 048
     Dates: start: 20091006, end: 20091009
  2. LEXAPRO [Concomitant]
     Indication: ANXIETY
     Dosage: DRUG REPORTED AS LEXIPRO
     Route: 048
     Dates: start: 20060701
  3. ZOCOR [Concomitant]
     Route: 048
     Dates: start: 20080901
  4. METFORMIN HCL [Concomitant]
     Route: 048
     Dates: start: 20081001
  5. ACTOS [Concomitant]
     Route: 048
     Dates: start: 20071001
  6. INSULIN [Concomitant]
     Dosage: TDD: 10 UNITS
     Route: 058
     Dates: start: 20080701

REACTIONS (1)
  - HALLUCINATION [None]
